FAERS Safety Report 22174101 (Version 1)
Quarter: 2023Q2

REPORT INFORMATION
  Report Type: Spontaneous
  Country: US (occurrence: US)
  Receive Date: 20230405
  Receipt Date: 20230405
  Transmission Date: 20230721
  Serious: No
  Sender: FDA-Public Use
  Company Number: US-BRISTOL-MYERS SQUIBB COMPANY-2023-047604

PATIENT
  Age: 70 Year
  Sex: Female

DRUGS (1)
  1. REVLIMID [Suspect]
     Active Substance: LENALIDOMIDE
     Indication: Follicular lymphoma stage III
     Dosage: FREQUENCY CYCLE: ONCE DAILY FOR 21 DAYS ON AND 7 DAYS OF
     Route: 048
     Dates: start: 202212

REACTIONS (1)
  - Immune system disorder [Unknown]
